FAERS Safety Report 6129782-8 (Version None)
Quarter: 2009Q1

REPORT INFORMATION
  Report Type: 
  Country: None (occurrence: None)
  Receive Date: 20090324
  Receipt Date: 20090312
  Transmission Date: 20090719
  Serious: Yes (Other)
  Sender: FDA-Public Use
  Company Number: FR-SANOFI-SYNTHELABO-A02200900677

PATIENT
  Age: 50 Year
  Sex: Male

DRUGS (1)
  1. ELOXATIN [Suspect]
     Indication: COLORECTAL CANCER
     Route: 042
     Dates: start: 20090101, end: 20090101

REACTIONS (4)
  - ERECTILE DYSFUNCTION [None]
  - FAECAL INCONTINENCE [None]
  - TOXIC NEUROPATHY [None]
  - URINARY TRACT DISORDER [None]
